FAERS Safety Report 7591403-5 (Version None)
Quarter: 2011Q3

REPORT INFORMATION
  Report Type: 
  Country: None (occurrence: None)
  Receive Date: 20110706
  Receipt Date: 20110623
  Transmission Date: 20111222
  Serious: Yes (Death)
  Sender: FDA-Public Use
  Company Number: US-AMGEN-USASP2011032551

PATIENT
  Age: 85 Year
  Sex: Female

DRUGS (3)
  1. PROCRIT [Suspect]
     Indication: ANAEMIA
     Dosage: UNK
     Dates: start: 20031110
  2. SODIUM CHLORIDE [Concomitant]
  3. INFED [Concomitant]

REACTIONS (1)
  - DEATH [None]
